FAERS Safety Report 24973723 (Version 2)
Quarter: 2025Q3

REPORT INFORMATION
  Report Type: Other
  Country: US (occurrence: US)
  Receive Date: 20250217
  Receipt Date: 20250922
  Transmission Date: 20251020
  Serious: No
  Sender: TRAVERE THERAPEUTICS
  Company Number: US-TRAVERE-2025TVT00205

PATIENT
  Age: 25 Year
  Sex: Male

DRUGS (2)
  1. FILSPARI [Suspect]
     Active Substance: SPARSENTAN
     Indication: IgA nephropathy
     Route: 048
     Dates: start: 20250204
  2. FILSPARI [Suspect]
     Active Substance: SPARSENTAN
     Dosage: 200 MG TWICE DAILY
     Route: 048

REACTIONS (2)
  - Blood potassium increased [Unknown]
  - Off label use [Unknown]
